FAERS Safety Report 13797183 (Version 2)
Quarter: 2017Q3

REPORT INFORMATION
  Report Type: Spontaneous
  Country: JP (occurrence: JP)
  Receive Date: 20170727
  Receipt Date: 20170818
  Transmission Date: 20171127
  Serious: Yes (Other)
  Sender: FDA-Public Use
  Company Number: JP-AMGEN-JPNSP2017113466

PATIENT
  Age: 5 Decade

DRUGS (3)
  1. CISPLATIN. [Concomitant]
     Active Substance: CISPLATIN
     Indication: GALLBLADDER CANCER
     Dosage: UNK
     Route: 041
  2. G-LASTA [Suspect]
     Active Substance: PEGFILGRASTIM
     Indication: PRODUCT USED FOR UNKNOWN INDICATION
     Dosage: UNK
     Route: 058
  3. GEMCITABINE HYDROCHLORIDE. [Concomitant]
     Active Substance: GEMCITABINE HYDROCHLORIDE
     Indication: GALLBLADDER CANCER
     Dosage: UNK
     Route: 041

REACTIONS (1)
  - Chemotherapy [Unknown]
